FAERS Safety Report 10874325 (Version 1)
Quarter: 2015Q1

REPORT INFORMATION
  Report Type: Spontaneous
  Country: US (occurrence: None)
  Receive Date: 20150223
  Receipt Date: 20150223
  Transmission Date: 20150721
  Serious: No
  Sender: FDA-Public Use
  Company Number: None

PATIENT
  Age: 77 Year
  Sex: Female

DRUGS (5)
  1. AMPYRA [Suspect]
     Active Substance: DALFAMPRIDINE
     Indication: MULTIPLE SCLEROSIS
     Route: 048
     Dates: start: 201006, end: 201406
  2. TRIAMCINOLONE LOTION [Concomitant]
  3. AVONEX [Concomitant]
     Active Substance: INTERFERON BETA-1A
  4. FOSAMAX [Concomitant]
     Active Substance: ALENDRONATE SODIUM
  5. RETIN-A [Concomitant]
     Active Substance: TRETINOIN

REACTIONS (1)
  - Drug ineffective [None]

NARRATIVE: CASE EVENT DATE: 20140523
